FAERS Safety Report 14749694 (Version 1)
Quarter: 2018Q2

REPORT INFORMATION
  Report Type: Spontaneous
  Country: US (occurrence: US)
  Receive Date: 20180412
  Receipt Date: 20180412
  Transmission Date: 20180711
  Serious: Yes (Other)
  Sender: FDA-Public Use
  Company Number: PHHY2018US057657

PATIENT
  Sex: Male

DRUGS (3)
  1. AMPICILLIN [Suspect]
     Active Substance: AMPICILLIN
     Indication: FOETAL EXPOSURE DURING PREGNANCY
     Route: 064
  2. CLINDAMYCIN. [Suspect]
     Active Substance: CLINDAMYCIN
     Indication: FOETAL EXPOSURE DURING PREGNANCY
     Route: 064
  3. AMPICILLIN [Suspect]
     Active Substance: AMPICILLIN
     Indication: SEPSIS NEONATAL

REACTIONS (8)
  - Coagulopathy [Recovered/Resolved]
  - Klebsiella infection [Unknown]
  - Hypoglycaemia [Unknown]
  - Anaemia [Unknown]
  - Haemoptysis [Unknown]
  - Foetal exposure during pregnancy [Unknown]
  - Pulmonary haemorrhage [Recovered/Resolved]
  - Thrombocytopenia [Unknown]
